FAERS Safety Report 11836177 (Version 1)
Quarter: 2015Q4

REPORT INFORMATION
  Report Type: Report from Study
  Country: US (occurrence: US)
  Receive Date: 20151215
  Receipt Date: 20151215
  Transmission Date: 20160305
  Serious: Yes (Other)
  Sender: FDA-Public Use
  Company Number: US-BAYER-2015-483940

PATIENT
  Age: 82 Year
  Sex: Male

DRUGS (2)
  1. STIVARGA [Suspect]
     Active Substance: REGORAFENIB
     Indication: COLORECTAL CANCER METASTATIC
     Dosage: 160 MG, QD
     Dates: start: 20151126, end: 20151126
  2. STIVARGA [Suspect]
     Active Substance: REGORAFENIB
     Indication: COLORECTAL CANCER METASTATIC
     Dosage: 80 MG, QD
     Route: 048
     Dates: start: 20151127, end: 20151127

REACTIONS (6)
  - Constipation [None]
  - Fatigue [Not Recovered/Not Resolved]
  - Dyspnoea [None]
  - Asthenia [Not Recovered/Not Resolved]
  - Weight decreased [None]
  - Dysphonia [None]

NARRATIVE: CASE EVENT DATE: 20151126
